FAERS Safety Report 7597108-9 (Version None)
Quarter: 2011Q3

REPORT INFORMATION
  Report Type: 
  Country: None (occurrence: None)
  Receive Date: 20110708
  Receipt Date: 20110629
  Transmission Date: 20111222
  Serious: Yes (Other)
  Sender: FDA-Public Use
  Company Number: US-JNJFOC-20110700549

PATIENT
  Sex: Female
  Weight: 63.5 kg

DRUGS (14)
  1. FENTANYL-100 [Suspect]
     Indication: LUNG NEOPLASM
     Route: 062
     Dates: start: 20060101
  2. UNKNOWN MEDICATION [Suspect]
     Indication: PRODUCT USED FOR UNKNOWN INDICATION
     Route: 065
  3. DURAGESIC-100 [Suspect]
     Indication: FIBROMYALGIA
     Route: 062
     Dates: end: 20060101
  4. FENTANYL-100 [Suspect]
     Indication: ARTHRITIS
     Route: 062
  5. DURAGESIC-100 [Suspect]
     Indication: LUNG NEOPLASM
     Route: 062
     Dates: end: 20060101
  6. FENTANYL-100 [Suspect]
     Indication: NODULE
     Route: 062
     Dates: start: 20060101
  7. FENTANYL-100 [Suspect]
     Indication: FIBROMYALGIA
     Route: 062
     Dates: start: 20060101
  8. UNKNOWN MEDICATION [Concomitant]
     Route: 065
  9. FENTANYL-100 [Suspect]
     Indication: ARTHRITIS
     Route: 062
     Dates: start: 20060101
  10. FENTANYL-100 [Suspect]
     Indication: NODULE
     Route: 062
  11. DURAGESIC-100 [Suspect]
     Indication: ARTHRITIS
     Route: 062
     Dates: end: 20060101
  12. FENTANYL-100 [Suspect]
     Indication: LUNG NEOPLASM
     Route: 062
  13. FENTANYL-100 [Suspect]
     Indication: FIBROMYALGIA
     Route: 062
  14. DURAGESIC-100 [Suspect]
     Indication: NODULE
     Route: 062
     Dates: end: 20060101

REACTIONS (8)
  - PRODUCT SIZE ISSUE [None]
  - HYPERTENSION [None]
  - DIABETES MELLITUS [None]
  - PAIN [None]
  - PRODUCT QUALITY ISSUE [None]
  - WRONG TECHNIQUE IN DRUG USAGE PROCESS [None]
  - PRODUCT ADHESION ISSUE [None]
  - BLOOD CHOLESTEROL INCREASED [None]
